FAERS Safety Report 6151104-7 (Version None)
Quarter: 2009Q2

REPORT INFORMATION
  Report Type: 
  Country: None (occurrence: None)
  Receive Date: 20090410
  Receipt Date: 20090331
  Transmission Date: 20091009
  Serious: Yes (Death)
  Sender: FDA-Public Use
  Company Number: JP-PFIZER INC-2009195078

PATIENT

DRUGS (1)
  1. ESTRACYT [Suspect]
     Route: 048

REACTIONS (1)
  - DEATH [None]
